FAERS Safety Report 4913039-4 (Version None)
Quarter: 2006Q1

REPORT INFORMATION
  Report Type: 
  Country: None (occurrence: None)
  Receive Date: 20060210
  Receipt Date: 20060127
  Transmission Date: 20060701
  Serious: Yes (Death)
  Sender: FDA-Public Use
  Company Number: 2005S1006690

PATIENT
  Age: 36 Year
  Sex: Female
  Weight: 140.1615 kg

DRUGS (2)
  1. CLOZAPINE [Suspect]
     Indication: BIPOLAR DISORDER
     Dosage: 300 MG; HS; PO
     Route: 048
     Dates: start: 20050414, end: 20050707
  2. ARIPIPRAZOLE [Concomitant]

REACTIONS (3)
  - DEPRESSED LEVEL OF CONSCIOUSNESS [None]
  - FALL [None]
  - PULMONARY EMBOLISM [None]
